FAERS Safety Report 8496463-5 (Version None)
Quarter: 2012Q2

REPORT INFORMATION
  Report Type: 
  Country: None (occurrence: None)
  Receive Date: 20120405
  Receipt Date: 20100106
  Transmission Date: 20120825
  Serious: Yes (Other)
  Sender: FDA-Public Use
  Company Number: PHHY2010US01525

PATIENT
  Age: 84 Year
  Sex: Female

DRUGS (5)
  1. RECLAST [Suspect]
     Dosage: UNK, INJECTION NOS
     Dates: start: 20080101
  2. LOZOL [Concomitant]
  3. METOPROLOL TARTRATE [Concomitant]
  4. CALTRATE +D (CALCIUM CARBONATE, VITAMIN D NOS) [Concomitant]
  5. VITAMIN D [Concomitant]

REACTIONS (3)
  - MYALGIA [None]
  - GAIT DISTURBANCE [None]
  - ARTHRITIS [None]
